FAERS Safety Report 24691253 (Version 2)
Quarter: 2025Q3

REPORT INFORMATION
  Report Type: Spontaneous
  Country: US (occurrence: US)
  Receive Date: 20241203
  Receipt Date: 20250809
  Transmission Date: 20251021
  Serious: Yes (Other)
  Sender: ALEXION PHARMACEUTICALS
  Company Number: US-AstraZeneca-CH-00757633A

PATIENT

DRUGS (1)
  1. FARXIGA [Suspect]
     Active Substance: DAPAGLIFLOZIN PROPANEDIOL
     Route: 065

REACTIONS (7)
  - Diabetes mellitus [Unknown]
  - Urinary tract infection [Unknown]
  - Heart rate increased [Unknown]
  - Respiratory rate increased [Unknown]
  - Constipation [Unknown]
  - Renal disorder [Unknown]
  - Diarrhoea [Unknown]
